FAERS Safety Report 10494428 (Version 2)
Quarter: 2016Q2

REPORT INFORMATION
  Report Type: Spontaneous
  Country: US (occurrence: US)
  Receive Date: 20140815
  Receipt Date: 20160531
  Transmission Date: 20160815
  Serious: Yes (Other)
  Sender: FDA-Public Use
  Company Number: ADR-2014-00041

PATIENT
  Age: 57 Year
  Sex: Male

DRUGS (6)
  1. CLONIDINE. [Suspect]
     Active Substance: CLONIDINE
     Dosage: 5.595 MCG/DAY
     Route: 037
     Dates: start: 20131010, end: 20131021
  2. BACLOFEN. [Suspect]
     Active Substance: BACLOFEN
     Route: 037
  3. MORPHINE [Suspect]
     Active Substance: MORPHINE
     Dosage: 3.497 MG/DAY
     Route: 037
     Dates: start: 20131010, end: 20131021
  4. MORPHINE [Suspect]
     Active Substance: MORPHINE
     Route: 037
  5. SALINE [Suspect]
     Active Substance: SODIUM CHLORIDE
     Route: 037
  6. CLONIDINE. [Suspect]
     Active Substance: CLONIDINE
     Dosage: 3.199 MG/DAY
     Route: 037

REACTIONS (6)
  - Underdose [Unknown]
  - Unevaluable event [Unknown]
  - No therapeutic response [Unknown]
  - Restless legs syndrome [Unknown]
  - Drug withdrawal syndrome [Unknown]
  - Back pain [Unknown]

NARRATIVE: CASE EVENT DATE: 2013
